FAERS Safety Report 8532679-7 (Version None)
Quarter: 2012Q2

REPORT INFORMATION
  Report Type: 
  Country: None (occurrence: None)
  Receive Date: 20120412
  Receipt Date: 20091016
  Transmission Date: 20120825
  Serious: Yes (Other)
  Sender: FDA-Public Use
  Company Number: PHEH2009US12160

PATIENT
  Age: 29 Year
  Sex: Male
  Weight: 190 kg

DRUGS (1)
  1. CLOZARIL [Suspect]
     Indication: PSYCHOTIC DISORDER
     Dosage: 300 MG DAILY, ORAL
     Route: 048
     Dates: start: 20061016

REACTIONS (1)
  - ANTIPSYCHOTIC DRUG LEVEL INCREASED [None]
